FAERS Safety Report 24888384 (Version 1)
Quarter: 2025Q1

REPORT INFORMATION
  Report Type: Spontaneous
  Country: CN (occurrence: CN)
  Receive Date: 20250127
  Receipt Date: 20250127
  Transmission Date: 20250409
  Serious: Yes (Hospitalization, Other)
  Sender: OCTAPHARMA
  Company Number: CN-OCTA-2025000053

PATIENT
  Age: 60 Year
  Sex: Female
  Weight: 54 kg

DRUGS (1)
  1. ALBUMIN HUMAN [Suspect]
     Active Substance: ALBUMIN HUMAN
     Indication: Hypoproteinaemia
     Route: 042
     Dates: start: 20250113, end: 20250114

REACTIONS (2)
  - Anaphylactic reaction [Unknown]
  - Dyshidrotic eczema [Recovering/Resolving]

NARRATIVE: CASE EVENT DATE: 20250114
